FAERS Safety Report 13592526 (Version 1)
Quarter: 2017Q2

REPORT INFORMATION
  Report Type: Spontaneous
  Country: US (occurrence: US)
  Receive Date: 20170530
  Receipt Date: 20170530
  Transmission Date: 20170830
  Serious: Yes (Other)
  Sender: FDA-Public Use
  Company Number: US-JNJFOC-20170523261

PATIENT
  Age: 60 Year
  Sex: Female
  Weight: 56.7 kg

DRUGS (4)
  1. RISPERDAL CONSTA [Suspect]
     Active Substance: RISPERIDONE
     Indication: SCHIZOPHRENIA
     Route: 030
     Dates: start: 20170309
  2. LEVOTHYROXINE. [Concomitant]
     Active Substance: LEVOTHYROXINE
     Indication: PRODUCT USED FOR UNKNOWN INDICATION
     Dosage: EVERY MORNING
     Route: 065
  3. RISPERDAL CONSTA [Suspect]
     Active Substance: RISPERIDONE
     Indication: SCHIZOPHRENIA
     Dosage: STARTED ABOUT 3-4 YEARS AGO
     Route: 030
     Dates: end: 2017
  4. RISPERIDONE PATRIOT [Suspect]
     Active Substance: RISPERIDONE
     Indication: SCHIZOPHRENIA
     Dosage: STARTED ABOUT 17 YEARS AGO
     Route: 048

REACTIONS (5)
  - Abnormal loss of weight [Not Recovered/Not Resolved]
  - Drug dose omission [Unknown]
  - Gastrooesophageal reflux disease [Recovered/Resolved]
  - Eructation [Not Recovered/Not Resolved]
  - Tongue neoplasm malignant stage unspecified [Recovered/Resolved]

NARRATIVE: CASE EVENT DATE: 2011
